FAERS Safety Report 5587460-8 (Version None)
Quarter: 2008Q1

REPORT INFORMATION
  Report Type: 
  Country: None (occurrence: None)
  Receive Date: 20080110
  Receipt Date: 20071217
  Transmission Date: 20080703
  Serious: No
  Sender: FDA-Public Use
  Company Number: US-BOEHRINGER INGELHEIM PHARMACEUTICALS, INC.-2007-BP-24605BP

PATIENT
  Sex: Male

DRUGS (5)
  1. SPIRIVA [Suspect]
     Indication: DYSPNOEA
     Route: 055
     Dates: start: 20071102
  2. QVAR 40 [Suspect]
     Indication: DYSPNOEA
     Dates: start: 20071101
  3. ALBUTEROL [Suspect]
     Indication: DYSPNOEA
     Dates: start: 20071101
  4. OXYGEN [Concomitant]
     Indication: DYSPNOEA
  5. SEREVENT [Concomitant]
     Dates: start: 20071101

REACTIONS (5)
  - COUGH [None]
  - DRUG INEFFECTIVE [None]
  - DRY MOUTH [None]
  - DYSPNOEA [None]
  - NASAL DRYNESS [None]
